FAERS Safety Report 22169974 (Version 1)
Quarter: 2023Q2

REPORT INFORMATION
  Report Type: Spontaneous
  Country: FR (occurrence: FR)
  Receive Date: 20230404
  Receipt Date: 20230404
  Transmission Date: 20230722
  Serious: Yes (Other)
  Sender: FDA-Public Use
  Company Number: FR-DENTSPLY-2023SCDP000094

PATIENT
  Sex: Male
  Weight: 30 kg

DRUGS (2)
  1. LIDOCAINE HYDROCHLORIDE AND EPINEPHRINE BITARTRATE [Suspect]
     Active Substance: EPINEPHRINE BITARTRATE\LIDOCAINE HYDROCHLORIDE
     Indication: General anaesthesia
     Dosage: 20 MILLIGRAM A DAY LIDOCAINE 1% ADRENALINE AGUETTANT, SOLUTION FOR INJECTION IN VIAL
     Route: 042
     Dates: start: 20230308, end: 20230308
  2. METRONIDAZOLE [Suspect]
     Active Substance: METRONIDAZOLE
     Indication: Antibiotic prophylaxis
     Dosage: 500 MILLIGRAM A DAY
     Route: 042
     Dates: start: 20230308, end: 20230308

REACTIONS (2)
  - Rash [Recovered/Resolved]
  - Hypotension [Recovered/Resolved]

NARRATIVE: CASE EVENT DATE: 20230308
